FAERS Safety Report 8187727-3 (Version None)
Quarter: 2012Q1

REPORT INFORMATION
  Report Type: 
  Country: None (occurrence: None)
  Receive Date: 20120306
  Receipt Date: 20120227
  Transmission Date: 20120608
  Serious: Yes (Other)
  Sender: FDA-Public Use
  Company Number: US-BAYER-2012-006822

PATIENT
  Age: 26 Year
  Sex: Female
  Weight: 77.098 kg

DRUGS (1)
  1. MIRENA [Suspect]
     Indication: CONTRACEPTION
     Dosage: 20 MCG/24HR, CONT
     Route: 015
     Dates: start: 20111029, end: 20120119

REACTIONS (4)
  - VAGINAL HAEMORRHAGE [None]
  - UTERINE PERFORATION [None]
  - PAIN [None]
  - ABDOMINAL PAIN [None]
